APPROVED DRUG PRODUCT: METHOCARBAMOL AND ASPIRIN
Active Ingredient: ASPIRIN; METHOCARBAMOL
Strength: 325MG;400MG
Dosage Form/Route: TABLET;ORAL
Application: A089193 | Product #001
Applicant: MCNEIL CONSUMER PRODUCTS CO DIV MCNEILAB INC
Approved: Feb 12, 1986 | RLD: No | RS: No | Type: DISCN